FAERS Safety Report 5160665-6 (Version None)
Quarter: 2006Q4

REPORT INFORMATION
  Report Type: 
  Country: None (occurrence: None)
  Receive Date: 20061121
  Receipt Date: 20061120
  Transmission Date: 20070319
  Serious: Yes (Other)
  Sender: FDA-Public Use
  Company Number: 139712

PATIENT
  Age: 25 Year
  Sex: Male

DRUGS (3)
  1. VOLTAREN [Suspect]
     Indication: ANAESTHESIA
  2. NETILMICIN (NETTACIN) [Concomitant]
  3. ARTIFICIAL TEARS (DROPSTAR TG) [Concomitant]

REACTIONS (7)
  - ADHERENT LEUKOMA [None]
  - CORNEAL OEDEMA [None]
  - DESCEMET'S MEMBRANE DISORDER [None]
  - RETINAL DEGENERATION [None]
  - ULCERATIVE KERATITIS [None]
  - VISION BLURRED [None]
  - VISUAL ACUITY REDUCED [None]
